FAERS Safety Report 5281554-2 (Version None)
Quarter: 2007Q1

REPORT INFORMATION
  Report Type: 
  Country: None (occurrence: None)
  Receive Date: 20070323
  Receipt Date: 20070323
  Transmission Date: 20070707
  Serious: Yes (Hospitalization)
  Sender: FDA-Public Use
  Company Number: None

PATIENT
  Sex: Female
  Weight: 46.1 kg

DRUGS (3)
  1. FLUOROURACIL [Suspect]
     Indication: TONGUE NEOPLASM MALIGNANT STAGE UNSPECIFIED
     Dosage: 600MG/M2 ~QD
     Dates: start: 20070225, end: 20070302
  2. HYDREA [Suspect]
     Indication: TONGUE NEOPLASM MALIGNANT STAGE UNSPECIFIED
     Dosage: 500MG  PO  QD
     Route: 048
     Dates: start: 20070225, end: 20070302
  3. CETUXIMAB [Suspect]
     Dosage: 250 MG/M2 QW
     Dates: start: 20070306

REACTIONS (1)
  - BACTERIAL INFECTION [None]
